FAERS Safety Report 16039798 (Version 1)
Quarter: 2019Q1

REPORT INFORMATION
  Report Type: Spontaneous
  Country: US (occurrence: US)
  Receive Date: 20190306
  Receipt Date: 20190306
  Transmission Date: 20190418
  Serious: Yes (Hospitalization)
  Sender: FDA-Public Use
  Company Number: US-TEVA-2019-US-1016811

PATIENT
  Age: 33 Year
  Sex: Female

DRUGS (18)
  1. ARICEPT [Concomitant]
     Active Substance: DONEPEZIL HYDROCHLORIDE
     Dates: start: 20091205
  2. PROVIGIL [Concomitant]
     Active Substance: MODAFINIL
     Dates: start: 20090417
  3. LEXAPRO [Concomitant]
     Active Substance: ESCITALOPRAM OXALATE
     Dates: start: 20080424
  4. VITAMIN C [Concomitant]
     Active Substance: ASCORBIC ACID
  5. METHYLPRED [Concomitant]
     Active Substance: METHYLPREDNISOLONE
     Dates: start: 20081015
  6. COPAXONE [Concomitant]
     Active Substance: GLATIRAMER ACETATE
     Dates: start: 20080818
  7. DETROL LA [Concomitant]
     Active Substance: TOLTERODINE TARTRATE
     Dates: start: 20080828
  8. AZITHROMYCIN ANHYDROUS. [Concomitant]
     Active Substance: AZITHROMYCIN ANHYDROUS
     Dates: start: 20090808
  9. VITAMIN B12 [Concomitant]
     Active Substance: CYANOCOBALAMIN
  10. AMANTADINE. [Concomitant]
     Active Substance: AMANTADINE HYDROCHLORIDE
     Dates: start: 20180827
  11. APAP/CODINE [Concomitant]
     Dates: start: 20100710
  12. DETROL LA [Concomitant]
     Active Substance: TOLTERODINE TARTRATE
     Dates: start: 20091130
  13. PLAVIX [Concomitant]
     Active Substance: CLOPIDOGREL BISULFATE
     Dates: start: 20080808
  14. AMANTADINE. [Concomitant]
     Active Substance: AMANTADINE HYDROCHLORIDE
     Dates: start: 20190204
  15. FOLIC ACID. [Concomitant]
     Active Substance: FOLIC ACID
  16. CENTRUM [Concomitant]
     Active Substance: VITAMINS
  17. COPAXONE [Suspect]
     Active Substance: GLATIRAMER ACETATE
     Indication: MULTIPLE SCLEROSIS
     Route: 058
     Dates: start: 20190124
  18. DONEPEZIL. [Concomitant]
     Active Substance: DONEPEZIL
     Dates: start: 20110218

REACTIONS (4)
  - Eye movement disorder [Not Recovered/Not Resolved]
  - Visual impairment [Not Recovered/Not Resolved]
  - Tremor [Not Recovered/Not Resolved]
  - Vision blurred [Not Recovered/Not Resolved]

NARRATIVE: CASE EVENT DATE: 2019
